FAERS Safety Report 6010223-6 (Version None)
Quarter: 2008Q4

REPORT INFORMATION
  Report Type: 
  Country: None (occurrence: None)
  Receive Date: 20081218
  Receipt Date: 20080218
  Transmission Date: 20090506
  Serious: No
  Sender: FDA-Public Use
  Company Number: A0699057A

PATIENT
  Age: 34 Year
  Sex: Female

DRUGS (5)
  1. FLONASE [Suspect]
     Indication: POSTNASAL DRIP
     Dosage: 2SPR TWICE PER DAY
     Route: 045
     Dates: start: 20071021, end: 20071121
  2. ADVAIR DISKUS 500/50 [Suspect]
     Indication: CHRONIC OBSTRUCTIVE PULMONARY DISEASE
     Dosage: 1PUFF TWICE PER DAY
     Route: 055
     Dates: start: 20071001
  3. LEVORA 0.15/30-28 [Concomitant]
  4. ZITHROMAX [Concomitant]
  5. CONTRACEPTIVE [Concomitant]

REACTIONS (7)
  - DRUG ADMINISTRATION ERROR [None]
  - EPISTAXIS [None]
  - HAEMOPTYSIS [None]
  - INCREASED VISCOSITY OF BRONCHIAL SECRETION [None]
  - PRODUCT QUALITY ISSUE [None]
  - PRODUCTIVE COUGH [None]
  - SPUTUM DISCOLOURED [None]
